FAERS Safety Report 8479732-4 (Version None)
Quarter: 2012Q2

REPORT INFORMATION
  Report Type: 
  Country: None (occurrence: None)
  Receive Date: 20120629
  Receipt Date: 20120618
  Transmission Date: 20120825
  Serious: Yes (Death, Hospitalization, Other)
  Sender: FDA-Public Use
  Company Number: GB-ROCHE-1063537

PATIENT
  Sex: Male

DRUGS (14)
  1. TRAMADOL HCL [Concomitant]
     Dosage: 50-100 MG 4-6 HRLY PRN
  2. THIAMINE [Concomitant]
  3. METRONIDAZOLE [Concomitant]
     Dates: start: 20120217
  4. MULTI-VITAMINS [Concomitant]
     Dosage: 1 TAB MANE
  5. PREDNISOLONE [Concomitant]
     Dosage: DOSE DOUBLED, DECREASE IN 2/52
  6. CIPROFLOXACIN [Concomitant]
     Dates: start: 20120217
  7. ASCORBIC ACID [Concomitant]
  8. LINEZOLID [Concomitant]
     Dates: start: 20120217
  9. ADCAL - D3 [Concomitant]
     Dosage: 2 TABS MANE
  10. MABTHERA [Suspect]
     Indication: SYSTEMIC LUPUS ERYTHEMATOSUS
     Dosage: ONCE DAILY (1 CYCLE X 2)
     Route: 042
     Dates: start: 20070101, end: 20070101
  11. VITAMIN B COMPLEX CAP [Concomitant]
     Dosage: 1 TAB MANE
  12. LANSOPRAZOLE [Concomitant]
  13. URSODIOL [Concomitant]
  14. PENTASA [Concomitant]
     Dosage: 500 MG 1200 AND 2200

REACTIONS (9)
  - DEATH [None]
  - MENINGITIS [None]
  - CHOLANGITIS SCLEROSING [None]
  - LISTERIOSIS [None]
  - SEPSIS [None]
  - LIVER ABSCESS [None]
  - LUNG CONSOLIDATION [None]
  - BILIARY SEPSIS [None]
  - CHOLECYSTITIS [None]
